FAERS Safety Report 6261958-1 (Version None)
Quarter: 2009Q3

REPORT INFORMATION
  Report Type: 
  Country: None (occurrence: None)
  Receive Date: 20090709
  Receipt Date: 20090304
  Transmission Date: 20100115
  Serious: Yes (Hospitalization)
  Sender: FDA-Public Use
  Company Number: B0582849A

PATIENT
  Age: 48 Year
  Sex: Male
  Weight: 102 kg

DRUGS (7)
  1. OMACOR [Suspect]
     Dosage: 1000MG PER DAY
     Route: 048
     Dates: start: 20050506
  2. BETA BLOCKER [Concomitant]
  3. ASPIRIN [Concomitant]
  4. CLOPIDOGREL [Concomitant]
  5. DIURETICS [Concomitant]
  6. STATINS [Concomitant]
  7. INSULIN [Concomitant]

REACTIONS (1)
  - ANGINA UNSTABLE [None]
